FAERS Safety Report 8316887-6 (Version None)
Quarter: 2012Q2

REPORT INFORMATION
  Report Type: 
  Country: None (occurrence: None)
  Receive Date: 20120427
  Receipt Date: 20120419
  Transmission Date: 20120825
  Serious: Yes (Hospitalization, Other)
  Sender: FDA-Public Use
  Company Number: US-BAYER-2011-105724

PATIENT
  Age: 29 Year
  Sex: Female
  Weight: 72.562 kg

DRUGS (9)
  1. IRON SULFATETHIAMIN COMPOUND TAB [Concomitant]
     Dosage: 325 MG, UNK
     Route: 048
     Dates: start: 19970312, end: 20020528
  2. YASMIN [Suspect]
     Indication: CONTRACEPTION
     Dosage: UNK
     Dates: start: 20020502, end: 20020528
  3. DARVOCET [Concomitant]
  4. KEFLEX [Concomitant]
  5. LUPRON - SLOW RELEASE [Concomitant]
  6. NAPROXEN [Concomitant]
     Dosage: 375 MG, UNK
     Route: 048
     Dates: start: 19970312, end: 20031002
  7. METRONIDAZOLE [Concomitant]
     Dosage: 500 MG, UNK
     Route: 048
     Dates: start: 19990607, end: 20050516
  8. PROVERA [Concomitant]
  9. ALLEGRA [Concomitant]
     Dosage: 60 MG, UNK
     Route: 048
     Dates: start: 20020502, end: 20020528

REACTIONS (15)
  - DEEP VEIN THROMBOSIS [None]
  - INJURY [None]
  - EMOTIONAL DISTRESS [None]
  - VAGINAL HAEMORRHAGE [None]
  - ANXIETY [None]
  - ANAEMIA [None]
  - THROMBOPHLEBITIS SUPERFICIAL [None]
  - PAIN [None]
  - GENERAL PHYSICAL HEALTH DETERIORATION [None]
  - HYSTERECTOMY [None]
  - MEDICAL DEVICE PAIN [None]
  - LEIOMYOMA [None]
  - VENOUS THROMBOSIS [None]
  - MENOMETRORRHAGIA [None]
  - UTERINE HAEMORRHAGE [None]
